FAERS Safety Report 5155909-0 (Version None)
Quarter: 2006Q4

REPORT INFORMATION
  Report Type: 
  Country: None (occurrence: None)
  Receive Date: 20061114
  Receipt Date: 20061030
  Transmission Date: 20070319
  Serious: Yes (Other)
  Sender: FDA-Public Use
  Company Number: 2006-149766-NL

PATIENT
  Age: 29 Year
  Sex: Female
  Weight: 57.6 kg

DRUGS (2)
  1. NUVARING [Suspect]
     Indication: CONTRACEPTION
     Dosage: NI VAGINAL
     Route: 067
     Dates: start: 20061022, end: 20061027
  2. LITHIUM CARBONATE [Concomitant]

REACTIONS (13)
  - ANOREXIA [None]
  - BIPOLAR DISORDER [None]
  - CRYING [None]
  - DEPRESSION [None]
  - DRUG EFFECT DECREASED [None]
  - HEADACHE [None]
  - HYPOAESTHESIA [None]
  - INSOMNIA [None]
  - NAUSEA [None]
  - PHOTOPSIA [None]
  - RETCHING [None]
  - SENSATION OF HEAVINESS [None]
  - VOMITING [None]
